FAERS Safety Report 16406425 (Version 2)
Quarter: 2019Q2

REPORT INFORMATION
  Report Type: Spontaneous
  Country: CZ (occurrence: CZ)
  Receive Date: 20190607
  Receipt Date: 20190621
  Transmission Date: 20190711
  Serious: Yes (Death, Other)
  Sender: FDA-Public Use
  Company Number: PHHY2019CZ131641

PATIENT
  Age: 23 Year
  Sex: Female

DRUGS (20)
  1. FENTANYL. [Suspect]
     Active Substance: FENTANYL
     Indication: BREAKTHROUGH PAIN
     Dosage: 50 UG, 20 TIMES PER DAY
     Route: 062
  2. FOLINIC ACID [Suspect]
     Active Substance: LEUCOVORIN
     Indication: METASTATIC GASTRIC CANCER
     Route: 065
  3. OXYCODONE HYDROCHLORIDE. [Suspect]
     Active Substance: OXYCODONE HYDROCHLORIDE
     Dosage: 20 MG, BID
     Route: 065
  4. NALOXONE [Suspect]
     Active Substance: NALOXONE
     Indication: PAIN
     Dosage: 5 MG, QD
     Route: 065
  5. FENTANYL. [Suspect]
     Active Substance: FENTANYL
     Indication: PAIN
     Dosage: 25 UG, UNK
     Route: 062
  6. OXYCODONE HYDROCHLORIDE. [Suspect]
     Active Substance: OXYCODONE HYDROCHLORIDE
     Dosage: 40 MG, BID
     Route: 065
  7. OXYCODONE HYDROCHLORIDE. [Suspect]
     Active Substance: OXYCODONE HYDROCHLORIDE
     Indication: PAIN
     Dosage: 10 MG, BID
     Route: 065
  8. BUTYLSCOPOLAMINE [Suspect]
     Active Substance: BUTYLSCOPOLAMINE
     Indication: PAIN
     Dosage: TID
     Route: 065
     Dates: start: 2016
  9. OXALIPLATIN. [Suspect]
     Active Substance: OXALIPLATIN
     Indication: METASTATIC GASTRIC CANCER
     Route: 065
  10. BUTYLSCOPOLAMINE [Suspect]
     Active Substance: BUTYLSCOPOLAMINE
     Indication: BREAKTHROUGH PAIN
  11. FENTANYL. [Suspect]
     Active Substance: FENTANYL
     Indication: ABDOMINAL PAIN
     Dosage: 12.5 UG
     Route: 062
  12. FENTANYL. [Suspect]
     Active Substance: FENTANYL
     Dosage: 150 UG, UNK
     Route: 062
  13. 5-FLUOROURACIL [Suspect]
     Active Substance: FLUOROURACIL
     Indication: METASTATIC GASTRIC CANCER
     Route: 065
  14. PACLITAXEL. [Suspect]
     Active Substance: PACLITAXEL
     Indication: METASTATIC GASTRIC CANCER
     Dosage: UNK
     Route: 065
     Dates: start: 20160621
  15. NALOXONE [Suspect]
     Active Substance: NALOXONE
     Dosage: 10 MG, BID
     Route: 065
  16. METAMIZOLE [Concomitant]
     Active Substance: METAMIZOLE
     Indication: BREAKTHROUGH PAIN
     Dosage: 5 ML, UNK
     Route: 042
  17. FENTANYL. [Suspect]
     Active Substance: FENTANYL
     Dosage: 133 UG, UNK
     Route: 060
  18. NALOXONE [Suspect]
     Active Substance: NALOXONE
     Dosage: 20 MG, BID
     Route: 065
  19. RAMUCIRUMAB [Suspect]
     Active Substance: RAMUCIRUMAB
     Indication: METASTATIC GASTRIC CANCER
     Route: 065
  20. METAMIZOLE [Concomitant]
     Active Substance: METAMIZOLE
     Indication: GASTRIC CANCER STAGE IV

REACTIONS (14)
  - Pain [Not Recovered/Not Resolved]
  - Malignant neoplasm progression [Fatal]
  - Hypophagia [Not Recovered/Not Resolved]
  - Drug abuse [Unknown]
  - Product use in unapproved indication [Unknown]
  - Abdominal pain [Not Recovered/Not Resolved]
  - Drug dependence [Unknown]
  - Ascites [Not Recovered/Not Resolved]
  - Drug ineffective [Unknown]
  - Metastatic gastric cancer [Fatal]
  - Nausea [Unknown]
  - Vomiting [Not Recovered/Not Resolved]
  - Overdose [Unknown]
  - Ileus paralytic [Unknown]

NARRATIVE: CASE EVENT DATE: 201602
